FAERS Safety Report 8484725-7 (Version None)
Quarter: 2012Q3

REPORT INFORMATION
  Report Type: 
  Country: None (occurrence: None)
  Receive Date: 20120703
  Receipt Date: 20120529
  Transmission Date: 20120928
  Serious: No
  Sender: FDA-Public Use
  Company Number: US-TEVA-341380USA

PATIENT
  Sex: Female
  Weight: 65.83 kg

DRUGS (3)
  1. NUVIGIL [Suspect]
     Indication: FATIGUE
  2. NUVIGIL [Suspect]
     Indication: SLEEP APNOEA SYNDROME
     Dosage: 250 MILLIGRAM;
     Route: 048
     Dates: start: 20120312, end: 20120319
  3. ESCITALOPRAM OXALATE [Concomitant]
     Indication: ANXIETY
     Route: 048

REACTIONS (7)
  - AGGRESSION [None]
  - NERVOUSNESS [None]
  - TENSION [None]
  - HEADACHE [None]
  - MOOD ALTERED [None]
  - DRUG PRESCRIBING ERROR [None]
  - IRRITABILITY [None]
